FAERS Safety Report 24232888 (Version 4)
Quarter: 2024Q3

REPORT INFORMATION
  Report Type: Report from Study
  Country: CO (occurrence: CO)
  Receive Date: 20240821
  Receipt Date: 20240924
  Transmission Date: 20241016
  Serious: Yes (Hospitalization, Other)
  Sender: NOVARTIS
  Company Number: CO-002147023-NVSC2024CO147149

PATIENT
  Age: 59 Year
  Sex: Male
  Weight: 83 kg

DRUGS (4)
  1. TASIGNA [Suspect]
     Active Substance: NILOTINIB
     Indication: Chronic myeloid leukaemia
     Dosage: 300 MG, Q12H
     Route: 048
     Dates: start: 20211202
  2. TASIGNA [Suspect]
     Active Substance: NILOTINIB
     Dosage: UNK
     Route: 048
  3. TASIGNA [Suspect]
     Active Substance: NILOTINIB
     Dosage: 150 MG (IN THE MORNING AND IN THE AFTERNOON)
     Route: 048
     Dates: start: 202112
  4. OXYGEN [Concomitant]
     Active Substance: OXYGEN
     Indication: Product used for unknown indication
     Dosage: 24 HOURS 7 DAYS A WEEK
     Route: 065

REACTIONS (11)
  - Infarction [Recovering/Resolving]
  - Thrombosis [Recovering/Resolving]
  - Red blood cell abnormality [Recovering/Resolving]
  - Red blood cell count increased [Recovering/Resolving]
  - Malaise [Unknown]
  - Illness [Unknown]
  - Product distribution issue [Unknown]
  - Inflammation [Unknown]
  - Gait disturbance [Unknown]
  - Off label use [Unknown]
  - Depressed mood [Unknown]

NARRATIVE: CASE EVENT DATE: 20240725
